FAERS Safety Report 5233321-3 (Version None)
Quarter: 2007Q1

REPORT INFORMATION
  Report Type: 
  Country: None (occurrence: None)
  Receive Date: 20070206
  Receipt Date: 20070130
  Transmission Date: 20070707
  Serious: Yes (Death)
  Sender: FDA-Public Use
  Company Number: 2006US002657

PATIENT
  Age: 88 Year
  Sex: Female
  Weight: 62.6 kg

DRUGS (9)
  1. AMEVIVE [Suspect]
     Indication: PSORIASIS
     Dosage: 15 MG, WEEKLY, INTRAMUSCULAR
     Route: 030
     Dates: end: 20050922
  2. AMEVIVE [Suspect]
     Indication: PSORIASIS
     Dosage: 15 MG, WEEKLY, INTRAMUSCULAR
     Route: 030
     Dates: start: 20050701
  3. HUMIBID (GUAIFENESIN) [Concomitant]
  4. LANOXIN [Concomitant]
  5. POTASSIUM CHLORIDE [Concomitant]
  6. PREDNISONE TAB [Concomitant]
  7. LASIX [Concomitant]
  8. ZAROXOLYN [Concomitant]
  9. ACCUPRIL [Concomitant]

REACTIONS (1)
  - DEATH [None]
